FAERS Safety Report 7445153-6 (Version None)
Quarter: 2011Q2

REPORT INFORMATION
  Report Type: 
  Country: None (occurrence: None)
  Receive Date: 20110420
  Receipt Date: 20110411
  Transmission Date: 20111010
  Serious: Yes (Hospitalization)
  Sender: FDA-Public Use
  Company Number: B0713685A

PATIENT
  Age: 44 Year
  Sex: Female

DRUGS (2)
  1. METHADONE HYDROCHLORIDE [Suspect]
     Indication: DRUG DEPENDENCE
     Dosage: ORAL
     Route: 048
  2. ITRACONAZOLE [Suspect]
     Indication: VULVOVAGINAL CANDIDIASIS
     Dosage: 20 MG / ORAL
     Route: 048

REACTIONS (8)
  - VULVOVAGINAL CANDIDIASIS [None]
  - CHEST DISCOMFORT [None]
  - LETHARGY [None]
  - TORSADE DE POINTES [None]
  - NERVOUS SYSTEM DISORDER [None]
  - RESPIRATORY DISORDER [None]
  - SYNCOPE [None]
  - CARDIOVASCULAR DISORDER [None]
